FAERS Safety Report 9704410 (Version 4)
Quarter: 2014Q1

REPORT INFORMATION
  Report Type: Spontaneous
  Country: SE (occurrence: SE)
  Receive Date: 20131122
  Receipt Date: 20140328
  Transmission Date: 20141002
  Serious: Yes (Hospitalization)
  Sender: FDA-Public Use
  Company Number: SE-NAPPMUNDI-GBR-2013-0016311

PATIENT
  Age: 74 Year
  Sex: Female

DRUGS (9)
  1. OXYCONTIN DEPOTTABLETIT [Suspect]
     Indication: NEURALGIA
     Dosage: UNK
     Route: 065
     Dates: start: 2008
  2. CYMBALTA [Suspect]
     Indication: ANXIETY
     Route: 065
  3. LYRICA [Suspect]
     Indication: NEURALGIA
     Route: 065
  4. ALVEDON [Suspect]
     Indication: NEURALGIA
     Route: 065
  5. DAKTACORT [Concomitant]
  6. CORTISONE [Concomitant]
  7. XERODENT                           /01274201/ [Concomitant]
  8. PROPAVAN [Concomitant]
     Dosage: UNK, PRN
  9. STESOLID [Concomitant]
     Dosage: UNK, PRN

REACTIONS (11)
  - Diplopia [Not Recovered/Not Resolved]
  - Deafness [Not Recovered/Not Resolved]
  - Back pain [Not Recovered/Not Resolved]
  - Toothache [Not Recovered/Not Resolved]
  - Pain in extremity [Not Recovered/Not Resolved]
  - Groin pain [Not Recovered/Not Resolved]
  - Somnolence [Not Recovered/Not Resolved]
  - Hyperhidrosis [Not Recovered/Not Resolved]
  - Dry mouth [Not Recovered/Not Resolved]
  - Amnesia [Not Recovered/Not Resolved]
  - Muscle spasms [Not Recovered/Not Resolved]
